FAERS Safety Report 6688780-6 (Version None)
Quarter: 2010Q2

REPORT INFORMATION
  Report Type: 
  Country: None (occurrence: None)
  Receive Date: 20100414
  Receipt Date: 20100407
  Transmission Date: 20101027
  Serious: Yes (Life-Threatening)
  Sender: FDA-Public Use
  Company Number: 2010SP020091

PATIENT
  Age: 7 Year
  Sex: Male
  Weight: 29.5 kg

DRUGS (12)
  1. DEXAMETHASONE [Suspect]
     Indication: ANAESTHESIA
     Dosage: 8 MG; IV
     Route: 042
  2. EPINEPHRINE [Suspect]
     Indication: ANALGESIC THERAPY
  3. ATRACURIUM BESYLATE [Suspect]
     Indication: ANAESTHESIA PROCEDURE
     Dosage: 20 MG; IV
     Route: 042
  4. BUPIVACAINE (BUPIVACAINE) [Suspect]
     Indication: ANALGESIC THERAPY
     Dosage: 8 ML
  5. DESFLURANE [Suspect]
     Indication: ANAESTHESIA PROCEDURE
  6. FENTANYL-100 [Suspect]
     Indication: ANAESTHESIA PROCEDURE
     Dosage: 0.05 MG; IV
     Route: 042
  7. MORPHINE [Suspect]
     Indication: ANALGESIC THERAPY
     Dosage: 3 MG; IV
     Route: 042
  8. NITROUS OXIDE W/ OXYGEN [Suspect]
     Indication: ANAESTHESIA PROCEDURE
  9. ONDANSETRON [Suspect]
     Indication: ANAESTHESIA PROCEDURE
     Dosage: 3 MG; IV
     Route: 042
  10. ACETAMINOPHEN [Suspect]
     Indication: ANALGESIC THERAPY
     Dosage: 600 MG; IV
     Route: 042
  11. OXYGEN [Concomitant]
  12. PROPOFOL [Suspect]
     Indication: ANAESTHESIA PROCEDURE
     Dosage: 100 MG IV

REACTIONS (5)
  - GRIP STRENGTH DECREASED [None]
  - MOTOR DYSFUNCTION [None]
  - MUSCULAR WEAKNESS [None]
  - RESPIRATORY ACIDOSIS [None]
  - RESPIRATORY DISTRESS [None]
